FAERS Safety Report 8859521 (Version 1)
Quarter: 2012Q4

REPORT INFORMATION
  Report Type: 
  Country: US (occurrence: US)
  Receive Date: 20121024
  Receipt Date: 20121024
  Transmission Date: 20130627
  Serious: Yes (Life-Threatening, Hospitalization)
  Sender: FDA-Public Use
  Company Number: US-ROCHE-GNE244865

PATIENT
  Age: 76 Year
  Sex: Male
  Weight: 79.45 kg

DRUGS (4)
  1. RITUXAN [Suspect]
     Indication: PRODUCT USED FOR UNKNOWN INDICATION
     Route: 065
  2. RAPTIVA [Suspect]
     Indication: PSORIASIS
     Dosage: 90 mg Q 2 Week
     Route: 058
     Dates: start: 20040401
  3. RAPTIVA [Suspect]
     Indication: PUSTULAR PSORIASIS
     Dosage: 125 Q 2 Week
     Route: 058
  4. PREDNISONE [Concomitant]
     Route: 065

REACTIONS (2)
  - Diffuse large B-cell lymphoma [Recovering/Resolving]
  - Malaise [Unknown]
